FAERS Safety Report 9851323 (Version 1)
Quarter: 2014Q1

REPORT INFORMATION
  Report Type: Report from Study
  Country: US (occurrence: US)
  Receive Date: 20140129
  Receipt Date: 20140129
  Transmission Date: 20141002
  Serious: Yes (Hospitalization, Other)
  Sender: FDA-Public Use
  Company Number: US-ROCHE-1336864

PATIENT
  Age: 82 Year
  Sex: Female

DRUGS (7)
  1. LUCENTIS [Suspect]
     Indication: AGE-RELATED MACULAR DEGENERATION
     Dosage: BOTH EYES
     Route: 050
  2. XOLAIR [Suspect]
     Indication: LUNG DISORDER
     Route: 058
     Dates: start: 2010
  3. NORVASC [Concomitant]
     Indication: BLOOD PRESSURE
     Dosage: 1 PILL TWICE A DAY
     Route: 065
  4. COZAAR [Concomitant]
     Indication: BLOOD PRESSURE
     Route: 065
  5. PRAVACOL [Concomitant]
     Route: 065
  6. ASMANEX [Concomitant]
     Dosage: 1 PUFF A DAY
     Route: 055
  7. TRAMADOL [Concomitant]
     Route: 065

REACTIONS (16)
  - Pulmonary congestion [Unknown]
  - Fall [Unknown]
  - Spinal fracture [Unknown]
  - Head injury [Unknown]
  - Visual impairment [Unknown]
  - Vision blurred [Unknown]
  - Visual acuity reduced [Unknown]
  - Muscular weakness [Unknown]
  - Gait disturbance [Unknown]
  - Abdominal discomfort [Unknown]
  - Injection site pain [Unknown]
  - Nasopharyngitis [Unknown]
  - Fatigue [Unknown]
  - Tendon injury [Unknown]
  - Pulmonary fibrosis [Unknown]
  - Sinus congestion [Unknown]
